FAERS Safety Report 11947646 (Version 1)
Quarter: 2016Q1

REPORT INFORMATION
  Report Type: Spontaneous
  Country: US (occurrence: US)
  Receive Date: 20160125
  Receipt Date: 20160125
  Transmission Date: 20160526
  Serious: No
  Sender: FDA-Public Use
  Company Number: US-JNJFOC-20151214131

PATIENT
  Sex: Female
  Weight: 47.63 kg

DRUGS (7)
  1. MENS ROGAINE EXTRA STRENGTH [Suspect]
     Active Substance: MINOXIDIL
     Route: 061
  2. ALL OTHER THERAPEUTIC PRODUCTS [Concomitant]
     Active Substance: UNSPECIFIED INGREDIENT
     Indication: NUTRITIONAL SUPPLEMENTATION
     Route: 065
  3. BIOTIN [Concomitant]
     Active Substance: BIOTIN
     Indication: NUTRITIONAL SUPPLEMENTATION
     Dosage: SINCE 2 YEARS- 10,000MG/DAY
     Route: 065
  4. MENS ROGAINE EXTRA STRENGTH [Suspect]
     Active Substance: MINOXIDIL
     Indication: ALOPECIA
     Dosage: 1ML DROPPERFUL
     Route: 061
  5. EVENING PRIMROSE OIL [Concomitant]
     Active Substance: EVENING PRIMROSE OIL
     Indication: NUTRITIONAL SUPPLEMENTATION
     Dosage: SINCE 2 YEARS- 3000MG/DAY
     Route: 065
  6. HAIR NUTRITION [Concomitant]
     Indication: NUTRITIONAL SUPPLEMENTATION
     Dosage: SINCE 1 MONTH.
     Route: 065
  7. PRENATAL U [Concomitant]
     Indication: NUTRITIONAL SUPPLEMENTATION
     Dosage: SINCE 2 YEARS
     Route: 065

REACTIONS (4)
  - Off label use [Not Recovered/Not Resolved]
  - Drug administered at inappropriate site [Not Recovered/Not Resolved]
  - Wrong patient received medication [Not Recovered/Not Resolved]
  - Alopecia [Not Recovered/Not Resolved]
